FAERS Safety Report 14651367 (Version 1)
Quarter: 2018Q1

REPORT INFORMATION
  Report Type: Spontaneous
  Country: US (occurrence: US)
  Receive Date: 20180316
  Receipt Date: 20180316
  Transmission Date: 20180509
  Serious: Yes (Hospitalization)
  Sender: FDA-Public Use
  Company Number: None

PATIENT
  Sex: Female

DRUGS (7)
  1. FUROSEMIDE, FLONASE, ELIQUIS [Concomitant]
  2. BENEFIBER, SINGULAIR, SIMVASTATIN [Concomitant]
  3. COLACE, BISOPROL, [Concomitant]
  4. ZINC 15,  GLIPIZIDE [Concomitant]
  5. XOLAIR [Suspect]
     Active Substance: OMALIZUMAB
     Indication: ASTHMA
     Dosage: ?          OTHER FREQUENCY:Q 2 WEEKS;?
     Route: 058
     Dates: start: 20100819
  6. ROBINUL, POTASSIUM, MIRALAX [Concomitant]
  7. METOLAZONE, IRON 21/7, MAGNESIUM [Concomitant]

REACTIONS (1)
  - Gallbladder operation [None]
